FAERS Safety Report 24809383 (Version 1)
Quarter: 2025Q1

REPORT INFORMATION
  Report Type: Spontaneous
  Country: JP (occurrence: JP)
  Receive Date: 20250106
  Receipt Date: 20250106
  Transmission Date: 20250409
  Serious: Yes (Hospitalization)
  Sender: DAIICHI
  Company Number: JP-DSJP-DSJ-2024-102355

PATIENT
  Age: 68 Year
  Sex: Male

DRUGS (1)
  1. ENHERTU [Suspect]
     Active Substance: FAM-TRASTUZUMAB DERUXTECAN-NXKI
     Indication: Lung neoplasm malignant
     Route: 041

REACTIONS (3)
  - Pulmonary toxicity [Unknown]
  - Disease progression [Unknown]
  - Eastern Cooperative Oncology Group performance status worsened [Unknown]
